FAERS Safety Report 19435350 (Version 1)
Quarter: 2021Q2

REPORT INFORMATION
  Report Type: Spontaneous
  Country: CN (occurrence: CN)
  Receive Date: 20210617
  Receipt Date: 20210617
  Transmission Date: 20210717
  Serious: Yes (Other)
  Sender: FDA-Public Use
  Company Number: CN-BAXTER-2021BAX016246

PATIENT
  Age: 13 Year
  Sex: Male
  Weight: 45.5 kg

DRUGS (9)
  1. 5% GLUCOSE  INJECTION [Suspect]
     Active Substance: DEXTROSE
     Indication: MEDICATION DILUTION
     Dosage: DOXORUBICIN HYDROCHLORIDE LIPOSOME 40MG + 5% GS 100ML?ROUTE: INTRA?PUMP INJECTION (LASTING FOR 24H)
     Route: 065
     Dates: start: 20210507, end: 20210507
  2. VINDESINE SULFATE [Suspect]
     Active Substance: VINDESINE SULFATE
     Indication: SOFT TISSUE SARCOMA
     Dosage: VINDESINE SULFATE 4 MG + 0.9% NS 40 ML
     Route: 042
     Dates: start: 20210507, end: 20210507
  3. DOXORUBICIN HYDROCHLORIDE LIPOSOME [Suspect]
     Active Substance: DOXORUBICIN HYDROCHLORIDE
     Indication: SOFT TISSUE SARCOMA
     Dosage: DOXORUBICIN HYDROCHLORIDE LIPOSOME 40MG + 5% GS 100ML?ROUTE: INTRA?PUMP INJECTION (LASTING FOR 24H)
     Route: 065
     Dates: start: 20210507, end: 20210507
  4. VINDESINE SULFATE [Suspect]
     Active Substance: VINDESINE SULFATE
     Indication: MALIGNANT CONNECTIVE TISSUE NEOPLASM
  5. ENDOXAN [Suspect]
     Active Substance: CYCLOPHOSPHAMIDE
     Indication: MALIGNANT CONNECTIVE TISSUE NEOPLASM
  6. DOXORUBICIN HYDROCHLORIDE LIPOSOME [Suspect]
     Active Substance: DOXORUBICIN HYDROCHLORIDE
     Indication: MALIGNANT CONNECTIVE TISSUE NEOPLASM
  7. ENDOXAN [Suspect]
     Active Substance: CYCLOPHOSPHAMIDE
     Indication: SOFT TISSUE SARCOMA
     Dosage: CYCLOPHOSPHAMIDE 1000 MG + 0.9% NS 100ML
     Route: 041
     Dates: start: 20210507, end: 20210507
  8. 0.9% SODIUM CHLORIDE INJECTION [Suspect]
     Active Substance: SODIUM CHLORIDE
     Dosage: VINDESINE SULFATE 4 MG + 0.9% NS 40 ML
     Route: 042
     Dates: start: 20210507, end: 20210507
  9. 0.9% SODIUM CHLORIDE INJECTION [Suspect]
     Active Substance: SODIUM CHLORIDE
     Indication: MEDICATION DILUTION
     Dosage: CYCLOPHOSPHAMIDE 1000 MG + 0.9% NS 100ML
     Route: 041
     Dates: start: 20210507, end: 20210507

REACTIONS (1)
  - Myelosuppression [Recovering/Resolving]

NARRATIVE: CASE EVENT DATE: 20210531
